FAERS Safety Report 4438362-1 (Version None)
Quarter: 2004Q3

REPORT INFORMATION
  Report Type: 
  Country: None (occurrence: None)
  Receive Date: 20040831
  Receipt Date: 20040727
  Transmission Date: 20050211
  Serious: No
  Sender: FDA-Public Use
  Company Number: US-GLAXOSMITHKLINE-A0519880A

PATIENT
  Age: 44 Year
  Sex: Female

DRUGS (3)
  1. WELLBUTRIN XL [Suspect]
     Indication: IRRITABILITY
     Dosage: 300MG PER DAY
     Route: 048
     Dates: start: 20040701, end: 20040728
  2. AMBIEN [Concomitant]
  3. NOVOCAINE [Concomitant]

REACTIONS (4)
  - DIZZINESS [None]
  - HYPERTENSION [None]
  - NAUSEA [None]
  - TREMOR [None]
